FAERS Safety Report 6434521-7 (Version None)
Quarter: 2009Q4

REPORT INFORMATION
  Report Type: 
  Country: None (occurrence: None)
  Receive Date: 20091110
  Receipt Date: 20091026
  Transmission Date: 20100525
  Serious: No
  Sender: FDA-Public Use
  Company Number: FR-GENENTECH-281967

PATIENT
  Sex: Male
  Weight: 67 kg

DRUGS (4)
  1. XOLAIR [Suspect]
     Indication: ASTHMA
     Dosage: 300 MG, 1/MONTH
     Route: 058
     Dates: start: 20080611
  2. XOLAIR [Suspect]
     Dosage: 150 MG, Q15D
     Route: 058
  3. XOLAIR [Suspect]
     Dosage: 150 MG, UNK
     Dates: start: 20090417
  4. XOLAIR [Suspect]
     Dosage: 250 MG, 1/MONTH
     Route: 058
     Dates: end: 20090420

REACTIONS (3)
  - ARTHRALGIA [None]
  - INFLUENZA LIKE ILLNESS [None]
  - MYALGIA [None]
